FAERS Safety Report 23424324 (Version 4)
Quarter: 2025Q2

REPORT INFORMATION
  Report Type: Spontaneous
  Country: PT (occurrence: PT)
  Receive Date: 20240120
  Receipt Date: 20250425
  Transmission Date: 20250716
  Serious: Yes (Hospitalization, Other)
  Sender: AUROBINDO
  Company Number: PT-TOWA-202305759

PATIENT
  Age: 61 Year
  Sex: Female

DRUGS (7)
  1. ROSUVASTATIN [Suspect]
     Active Substance: ROSUVASTATIN
     Indication: Metabolic syndrome
     Route: 065
  2. ROSUVASTATIN [Suspect]
     Active Substance: ROSUVASTATIN
     Indication: Diabetic nephropathy
  3. ROSUVASTATIN [Suspect]
     Active Substance: ROSUVASTATIN
     Indication: Cardiovascular event prophylaxis
  4. Immunoglobulin [Concomitant]
     Indication: Product used for unknown indication
     Route: 042
  5. METHOTREXATE [Concomitant]
     Active Substance: METHOTREXATE
     Indication: Product used for unknown indication
     Route: 065
  6. METHOTREXATE [Concomitant]
     Active Substance: METHOTREXATE
     Route: 065
  7. PREDNISOLONE [Concomitant]
     Active Substance: PREDNISOLONE
     Indication: Product used for unknown indication
     Route: 065

REACTIONS (11)
  - Immune-mediated myositis [Recovering/Resolving]
  - Autoimmune myositis [Recovering/Resolving]
  - Rhabdomyolysis [Recovering/Resolving]
  - Quadriparesis [Unknown]
  - Gait disturbance [Unknown]
  - Dysphagia [Unknown]
  - Decreased appetite [Unknown]
  - Muscular weakness [Unknown]
  - Muscle atrophy [Unknown]
  - Asthenia [Unknown]
  - Dysphonia [Unknown]

NARRATIVE: CASE EVENT DATE: 20210601
